FAERS Safety Report 14113201 (Version 2)
Quarter: 2017Q4

REPORT INFORMATION
  Report Type: Spontaneous
  Country: US (occurrence: US)
  Receive Date: 20171023
  Receipt Date: 20171113
  Transmission Date: 20180321
  Serious: Yes (Death, Other)
  Sender: FDA-Public Use
  Company Number: PHEH2017US034014

PATIENT
  Age: 5 Year
  Sex: Female

DRUGS (5)
  1. ANAKINRA [Concomitant]
     Active Substance: ANAKINRA
     Indication: PHARYNGITIS STREPTOCOCCAL
     Dosage: 0.5 DF, QOD
     Route: 065
  2. ETOPOSIDE. [Concomitant]
     Active Substance: ETOPOSIDE
     Indication: PRODUCT USED FOR UNKNOWN INDICATION
     Route: 065
  3. TACROLIMUS. [Suspect]
     Active Substance: TACROLIMUS
     Indication: IMMUNE SYSTEM DISORDER
     Route: 065
  4. ILARIS [Concomitant]
     Active Substance: CANAKINUMAB
     Indication: PRODUCT USED FOR UNKNOWN INDICATION
     Dosage: 1 DF, QMO
     Route: 065
     Dates: start: 20161223
  5. PREDNISOLONE. [Concomitant]
     Active Substance: PREDNISOLONE
     Indication: STILL^S DISEASE
     Route: 065

REACTIONS (23)
  - Anaemia [Unknown]
  - Abdominal pain upper [Unknown]
  - Urine output decreased [Unknown]
  - Necrosis [Unknown]
  - Asthenia [Unknown]
  - Gastric dilatation [Unknown]
  - Cardiovascular disorder [Unknown]
  - Discomfort [Unknown]
  - Abdominal compartment syndrome [Unknown]
  - Histiocytosis haematophagic [Unknown]
  - Pyrexia [Unknown]
  - Gastrointestinal haemorrhage [Unknown]
  - Dysgeusia [Unknown]
  - Aphthous ulcer [Unknown]
  - Platelet count decreased [Unknown]
  - Mouth swelling [Unknown]
  - Swelling face [Unknown]
  - Swollen tongue [Unknown]
  - Abdominal discomfort [Unknown]
  - Fluid retention [Unknown]
  - Pneumocystis jirovecii pneumonia [Unknown]
  - Glossodynia [Unknown]
  - Death [Fatal]

NARRATIVE: CASE EVENT DATE: 201704
